FAERS Safety Report 15739012 (Version 3)
Quarter: 2019Q1

REPORT INFORMATION
  Report Type: Spontaneous
  Country: US (occurrence: US)
  Receive Date: 20181219
  Receipt Date: 20190305
  Transmission Date: 20190417
  Serious: Yes (Hospitalization, Other)
  Sender: FDA-Public Use
  Company Number: US-BAYER-2018-239078

PATIENT
  Age: 22 Year
  Sex: Female
  Weight: 86 kg

DRUGS (1)
  1. SKYLA [Suspect]
     Active Substance: LEVONORGESTREL
     Indication: CONTRACEPTION
     Dosage: 14 MCG/24HR, CONT
     Route: 015
     Dates: start: 20180123, end: 20181121

REACTIONS (5)
  - Haemorrhage in pregnancy [None]
  - Ectopic pregnancy with contraceptive device [None]
  - Drug ineffective [None]
  - Procedural pain [None]
  - Pain [None]

NARRATIVE: CASE EVENT DATE: 20181120
